FAERS Safety Report 7831407-8 (Version None)
Quarter: 2011Q4

REPORT INFORMATION
  Report Type: 
  Country: None (occurrence: None)
  Receive Date: 20111021
  Receipt Date: 20111019
  Transmission Date: 20120403
  Serious: No
  Sender: FDA-Public Use
  Company Number: US-TEVA-305766USA

PATIENT
  Sex: Female

DRUGS (3)
  1. SINEMET [Concomitant]
     Dosage: 25/100MG
  2. AZILECT [Suspect]
     Dosage: 1 MILLIGRAM;
     Route: 048
     Dates: start: 20110915
  3. ATORVASTATIN CALCIUM [Concomitant]

REACTIONS (1)
  - DRUG INEFFECTIVE [None]
